FAERS Safety Report 12279670 (Version 1)
Quarter: 2016Q2

REPORT INFORMATION
  Report Type: Not Available
  Country: None (occurrence: US)
  Receive Date: 20160418
  Receipt Date: 20160418
  Transmission Date: 20160815
  Serious: No
  Sender: FDA-Public Use
  Company Number: US-AKORN-13006

PATIENT
  Age: 78 Year
  Sex: Male

DRUGS (1)
  1. BRIMONIDINE TARTRATE OPHTHALMIC  SOLUTION [Suspect]
     Active Substance: BRIMONIDINE TARTRATE

REACTIONS (1)
  - Eye pain [Recovered/Resolved]
